FAERS Safety Report 23831943 (Version 1)
Quarter: 2024Q2

REPORT INFORMATION
  Report Type: Spontaneous
  Country: US (occurrence: None)
  Receive Date: 20240507
  Receipt Date: 20240507
  Transmission Date: 20240716
  Serious: No
  Sender: FDA-Public Use
  Company Number: None

PATIENT
  Sex: Female
  Weight: 86.4 kg

DRUGS (27)
  1. WEGOVY [Suspect]
     Active Substance: SEMAGLUTIDE
     Indication: Weight control
     Dosage: OTHER QUANTITY : 1 INJECTION(S);?OTHER FREQUENCY : ONCE PER WEEK;?OTHER ROUTE : INJECTED INTO STOMAC
     Route: 050
     Dates: start: 20240307, end: 20240328
  2. EMGALITY [Concomitant]
     Active Substance: GALCANEZUMAB-GNLM
  3. CELEBREX [Concomitant]
     Active Substance: CELECOXIB
  4. FLEXERIL [Concomitant]
     Active Substance: CYCLOBENZAPRINE HYDROCHLORIDE
  5. GABAPENTIN [Concomitant]
     Active Substance: GABAPENTIN
  6. TOPAMAX [Concomitant]
     Active Substance: TOPIRAMATE
  7. OMEPRAZOLE [Concomitant]
     Active Substance: DONEPEZIL HYDROCHLORIDE\OMEPRAZOLE\OMEPRAZOLE MAGNESIUM
  8. ESTRADIOL [Concomitant]
     Active Substance: ESTRADIOL
  9. BREO ELLIPTA [Concomitant]
     Active Substance: FLUTICASONE FUROATE\VILANTEROL TRIFENATATE
  10. ALBUTEROL [Concomitant]
     Active Substance: ALBUTEROL
  11. ASPIRIN [Concomitant]
     Active Substance: ASPIRIN
  12. DULOXETINE [Concomitant]
     Active Substance: DULOXETINE
  13. ZYRTEC [Concomitant]
     Active Substance: CETIRIZINE HYDROCHLORIDE
  14. NADALOL [Concomitant]
  15. FLONASE [Concomitant]
     Active Substance: FLUTICASONE PROPIONATE
  16. LEVOTHYROXINE [Concomitant]
     Active Substance: LEVOTHYROXINE\LEVOTHYROXINE SODIUM
  17. FISH OIL [Concomitant]
     Active Substance: FISH OIL
  18. VITAMIN D [Concomitant]
     Active Substance: VITAMIN D NOS
  19. VITAMIN D [Concomitant]
     Active Substance: VITAMIN D NOS
  20. VITAMIN C [Concomitant]
     Active Substance: ASCORBIC ACID
  21. MINERALS\VITAMINS [Concomitant]
     Active Substance: MINERALS\VITAMINS
  22. CITRCAL [Concomitant]
  23. VITAMIN B12 [Concomitant]
     Active Substance: CYANOCOBALAMIN
  24. MAGNESIUM [Concomitant]
     Active Substance: MAGNESIUM
  25. ZINC [Concomitant]
     Active Substance: PYRITHIONE ZINC\ZINC\ZINC CHLORIDE
  26. BIOTINE [Concomitant]
  27. EMERGEN-C [Concomitant]
     Active Substance: VITAMINS

REACTIONS (4)
  - Abdominal pain upper [None]
  - Nausea [None]
  - Malaise [None]
  - Viral infection [None]
